FAERS Safety Report 6427500-7 (Version None)
Quarter: 2009Q4

REPORT INFORMATION
  Report Type: 
  Country: None (occurrence: None)
  Receive Date: 20091104
  Receipt Date: 20091026
  Transmission Date: 20100525
  Serious: Yes (Hospitalization)
  Sender: FDA-Public Use
  Company Number: PHEH2009US14586

PATIENT
  Age: 41 Year
  Sex: Female

DRUGS (1)
  1. EXJADE [Suspect]
     Dosage: 2500 MG, QD
     Route: 048

REACTIONS (1)
  - CARDIO-RESPIRATORY ARREST [None]
